FAERS Safety Report 8893944 (Version 3)
Quarter: 2013Q2

REPORT INFORMATION
  Report Type: Not Available
  Country: FR (occurrence: FR)
  Receive Date: 20121108
  Receipt Date: 20130408
  Transmission Date: 20140414
  Serious: Yes (Hospitalization)
  Sender: FDA-Public Use
  Company Number: FR-NAPPMUNDI-GBR-2012-0012036

PATIENT
  Age: 57 Year
  Sex: Female

DRUGS (21)
  1. OXYCODONE HYDROCHLORIDE [Suspect]
     Indication: PAIN
     Dosage: UNK
     Route: 048
     Dates: start: 20120731, end: 20120805
  2. ZOVIRAX /00587301/ [Suspect]
     Indication: PRODUCT USED FOR UNKNOWN INDICATION
     Dosage: UNK
     Route: 065
     Dates: start: 20120731, end: 20120807
  3. VANCOMYCINE [Suspect]
     Indication: PSEUDOMONAS INFECTION
     Dosage: UNK
     Route: 065
     Dates: start: 20120803, end: 20120805
  4. PLITICAN [Suspect]
     Indication: NAUSEA
     Dosage: UNK
     Route: 042
     Dates: start: 20120722, end: 20120808
  5. TRIFLUCAN [Suspect]
     Indication: PROPHYLAXIS
     Dosage: UNK
     Route: 065
     Dates: start: 20120725, end: 20120806
  6. FORTUM [Suspect]
     Indication: PSEUDOMONAS INFECTION
     Dosage: UNK
     Route: 042
     Dates: start: 20120802, end: 20120809
  7. FORTUM [Suspect]
     Dosage: UNK
     Dates: start: 20120725, end: 20120728
  8. NEULASTA [Concomitant]
     Dosage: UNK
     Dates: start: 20120727
  9. FLAGYL /00012501/ [Concomitant]
     Dosage: UNK
     Dates: start: 20120802, end: 20120807
  10. ACUPAN [Concomitant]
     Dosage: UNK
     Dates: start: 20120802, end: 20120807
  11. PERFALGAN [Concomitant]
     Dosage: UNK
     Dates: start: 20120803, end: 20120807
  12. SPASFON /00765801/ [Concomitant]
     Dosage: UNK
     Dates: start: 20120803, end: 20120810
  13. SMECTA                             /00837601/ [Concomitant]
     Dosage: UNK
     Dates: start: 20120804, end: 20120810
  14. TIORFAN [Concomitant]
     Dosage: UNK
     Dates: start: 20120804, end: 20120810
  15. MYOLASTAN [Concomitant]
     Dosage: UNK
     Dates: start: 20120808, end: 20120809
  16. ALTEISDUO [Concomitant]
  17. TEMERIT [Concomitant]
     Dosage: UNK
  18. MOPRAL                             /00661201/ [Concomitant]
     Dosage: UNK
  19. VERSATIS [Concomitant]
  20. LIPANTHYL [Concomitant]
  21. COOLMETEC [Concomitant]

REACTIONS (2)
  - Cholestasis [Recovered/Resolved]
  - Rash maculo-papular [Recovered/Resolved]
